FAERS Safety Report 9669306 (Version 2)
Quarter: 2013Q4

REPORT INFORMATION
  Report Type: Spontaneous
  Country: JP (occurrence: JP)
  Receive Date: 20131105
  Receipt Date: 20131105
  Transmission Date: 20140711
  Serious: Yes (Other)
  Sender: FDA-Public Use
  Company Number: JP-PFIZER INC-2013306227

PATIENT
  Age: 70 Year
  Sex: Female

DRUGS (6)
  1. CABASER [Suspect]
     Indication: PARKINSON^S DISEASE
     Dosage: 2 MG, DAILY
     Route: 048
     Dates: end: 20131029
  2. CABASER [Suspect]
     Dosage: UNK
     Route: 048
     Dates: start: 20131030
  3. MENESIT [Suspect]
     Indication: PARKINSON^S DISEASE
     Dosage: 3 DF, DAILY
     Route: 048
  4. MENESIT [Suspect]
     Dosage: 4.5 DF, DAILY
     Route: 048
     Dates: end: 20131029
  5. MENESIT [Suspect]
     Dosage: UNK
     Route: 048
     Dates: start: 20131030
  6. NAUZELIN [Concomitant]
     Dosage: UNK; 3X/DAY

REACTIONS (3)
  - Hallucination [Unknown]
  - Nausea [Unknown]
  - Thirst [Unknown]
